FAERS Safety Report 5292224-9 (Version None)
Quarter: 2007Q2

REPORT INFORMATION
  Report Type: 
  Country: None (occurrence: None)
  Receive Date: 20070410
  Receipt Date: 20070330
  Transmission Date: 20071010
  Serious: Yes (Hospitalization)
  Sender: FDA-Public Use
  Company Number: DE-ROCHE-490608

PATIENT
  Age: 78 Year
  Sex: Female

DRUGS (2)
  1. CEFTRIAXONE [Suspect]
     Route: 042
     Dates: start: 20061019, end: 20061029
  2. METRONIDAZOLE [Suspect]
     Route: 042
     Dates: start: 20061019, end: 20061029

REACTIONS (1)
  - FUNGAL INFECTION [None]
